FAERS Safety Report 8457684-0 (Version None)
Quarter: 2012Q2

REPORT INFORMATION
  Report Type: 
  Country: None (occurrence: None)
  Receive Date: 20120618
  Receipt Date: 20120618
  Transmission Date: 20120825
  Serious: Yes (Hospitalization)
  Sender: FDA-Public Use
  Company Number: None

PATIENT
  Age: 62 Year
  Sex: Male
  Weight: 110.2 kg

DRUGS (12)
  1. AMLODIPINE [Concomitant]
  2. HYDRALAZINE HYDROCHLORIDE [Concomitant]
  3. MAGNESIUM OXIDE [Concomitant]
  4. LEVEMIR [Concomitant]
  5. METOPROLOL TARTRATE [Concomitant]
  6. HUMALOG [Concomitant]
  7. VANCOMYCIN [Suspect]
     Indication: WOUND INFECTION
     Dosage: 2GM Q12HRS IV
     Route: 042
     Dates: start: 20120528, end: 20120531
  8. NORCO [Concomitant]
  9. ASPIRIN [Concomitant]
  10. MEROPENEM [Suspect]
     Indication: WOUND INFECTION
     Dosage: 1GM Q8HRS IV
     Route: 042
     Dates: start: 20120530, end: 20120602
  11. ZOSYN [Concomitant]
  12. FAMOTIDINE [Concomitant]

REACTIONS (6)
  - RASH MACULO-PAPULAR [None]
  - TUBULOINTERSTITIAL NEPHRITIS [None]
  - RENAL IMPAIRMENT [None]
  - NEPHRITIS ALLERGIC [None]
  - RASH ERYTHEMATOUS [None]
  - PRURITUS [None]
